FAERS Safety Report 14224079 (Version 1)
Quarter: 2017Q4

REPORT INFORMATION
  Report Type: Spontaneous
  Country: US (occurrence: US)
  Receive Date: 20171124
  Receipt Date: 20171124
  Transmission Date: 20180321
  Serious: Yes (Disabling)
  Sender: FDA-Public Use
  Company Number: None

PATIENT
  Age: 50 Year
  Sex: Male
  Weight: 72 kg

DRUGS (6)
  1. BRISEMENT INJECTION [Concomitant]
  2. NASACORT [Concomitant]
     Active Substance: TRIAMCINOLONE ACETONIDE
  3. CORTICOSTEROID [Suspect]
     Active Substance: CORTICOSTEROID NOS
     Route: 030
     Dates: start: 20171019
  4. BUPROPION. [Concomitant]
     Active Substance: BUPROPION
  5. PREDNISONE. [Concomitant]
     Active Substance: PREDNISONE
  6. NSAID^S [Concomitant]
     Active Substance: UNSPECIFIED INGREDIENT

REACTIONS (7)
  - Nerve injury [None]
  - Myalgia [None]
  - Pain [None]
  - Neuralgia [None]
  - Joint stabilisation [None]
  - Muscular weakness [None]
  - Soft tissue injury [None]

NARRATIVE: CASE EVENT DATE: 20171019
